FAERS Safety Report 6340940-X (Version None)
Quarter: 2009Q3

REPORT INFORMATION
  Report Type: 
  Country: None (occurrence: None)
  Receive Date: 20090904
  Receipt Date: 20090826
  Transmission Date: 20100115
  Serious: Yes (Hospitalization)
  Sender: FDA-Public Use
  Company Number: US-B.I. PHARMACEUTICALS,INC./RIDGEFIELD-2009-BP-10061BP

PATIENT
  Sex: Female
  Weight: 55 kg

DRUGS (6)
  1. MOBIC [Suspect]
     Dosage: DAILY
  2. CELECOXIB/NAPROXEN/IBUPROFEN (BLIND) [Suspect]
     Indication: OSTEOARTHRITIS
     Route: 048
     Dates: start: 20070711, end: 20080227
  3. CELECOXIB/NAPROXEN/IBUPROFEN (BLIND) [Suspect]
     Indication: RHEUMATOID ARTHRITIS
  4. TRAMADOL HCL [Concomitant]
  5. AMBIEN [Concomitant]
  6. NEXIUM [Concomitant]
     Dosage: 20 MG
     Dates: start: 20070710, end: 20080227

REACTIONS (1)
  - MYOCARDIAL INFARCTION [None]
